FAERS Safety Report 18118699 (Version 5)
Quarter: 2023Q1

REPORT INFORMATION
  Report Type: Spontaneous
  Country: US (occurrence: US)
  Receive Date: 20200806
  Receipt Date: 20230215
  Transmission Date: 20230418
  Serious: No
  Sender: FDA-Public Use
  Company Number: US-PFIZER INC-2020299169

PATIENT
  Age: 83 Year
  Sex: Female

DRUGS (3)
  1. IBRANCE [Suspect]
     Active Substance: PALBOCICLIB
     Indication: Breast cancer female
     Dosage: 125 MG, CYCLIC (DAILY Q21D Q28D)
     Route: 048
  2. IBRANCE [Suspect]
     Active Substance: PALBOCICLIB
     Dosage: 100 MG
  3. IBRANCE [Suspect]
     Active Substance: PALBOCICLIB
     Dosage: CYCLIC (12 CAP PO DAILY Q21D Q28D)
     Route: 048

REACTIONS (4)
  - Neoplasm progression [Unknown]
  - Tooth disorder [Unknown]
  - Product dose omission issue [Unknown]
  - Product prescribing error [Unknown]
